FAERS Safety Report 7842292-2 (Version None)
Quarter: 2011Q4

REPORT INFORMATION
  Report Type: 
  Country: None (occurrence: None)
  Receive Date: 20111025
  Receipt Date: 20111017
  Transmission Date: 20120403
  Serious: Yes (Hospitalization)
  Sender: FDA-Public Use
  Company Number: ES-JNJFOC-20111008996

PATIENT
  Age: 50 Year
  Sex: Male

DRUGS (8)
  1. RENVELA [Interacting]
     Indication: HYPERPHOSPHATAEMIA
     Route: 048
  2. INTELENCE [Suspect]
     Indication: HIV INFECTION
     Route: 048
  3. FUROSEMIDE [Interacting]
     Indication: HYPERTENSION
     Route: 048
  4. FOSRENOL [Interacting]
     Indication: RENAL FAILURE
     Route: 048
  5. VIDEX [Interacting]
     Indication: HIV INFECTION
     Route: 048
     Dates: start: 20100421, end: 20110101
  6. VIDEX [Interacting]
     Route: 048
     Dates: start: 20110525, end: 20110715
  7. REYATAZ [Interacting]
     Indication: HIV INFECTION
     Route: 048
     Dates: start: 20100101
  8. CAPENON [Interacting]
     Indication: HYPERTENSION
     Route: 048

REACTIONS (2)
  - PANCREATITIS ACUTE [None]
  - DRUG INTERACTION [None]
